FAERS Safety Report 21772434 (Version 1)
Quarter: 2022Q4

REPORT INFORMATION
  Report Type: Spontaneous
  Country: FI (occurrence: FI)
  Receive Date: 20221223
  Receipt Date: 20221223
  Transmission Date: 20230113
  Serious: Yes (Life-Threatening)
  Sender: FDA-Public Use
  Company Number: None

PATIENT
  Age: 62 Year
  Sex: Female

DRUGS (8)
  1. CIPROFLOXACIN [Suspect]
     Active Substance: CIPROFLOXACIN
     Indication: Urinary tract infection
     Dosage: 500,MG,DAILY
     Route: 048
     Dates: start: 20221017, end: 20221024
  2. PRAMIPEXOLE [Concomitant]
     Active Substance: PRAMIPEXOLE
     Indication: Pain in extremity
     Dosage: 88,?G,DAILY
     Route: 048
     Dates: start: 20221014, end: 20221107
  3. CYMBALTA [Concomitant]
     Active Substance: DULOXETINE HYDROCHLORIDE
     Indication: Myalgia
     Route: 048
     Dates: start: 20221014, end: 20221107
  4. STELLA AURARIA [Concomitant]
     Indication: Insomnia
     Dosage: ,,AS NECESSARY
     Route: 048
     Dates: start: 20220816, end: 2022
  5. PANADOL FORTE [PARACETAMOL] [Concomitant]
     Indication: Pain
     Dosage: ,,AS NECESSARY
     Route: 048
     Dates: start: 2018
  6. PREDNISOLONE [Concomitant]
     Active Substance: PREDNISOLONE
     Indication: Asthma
     Route: 048
     Dates: start: 20221012, end: 20221018
  7. CARDACE AM [Concomitant]
     Indication: Hypertension
     Dosage: 5,MG,DAILY
     Route: 048
     Dates: start: 20220905
  8. ALBUTEROL SULFATE [Concomitant]
     Active Substance: ALBUTEROL SULFATE
     Indication: Asthma
     Dosage: 200,?G,DAILY
     Route: 055
     Dates: start: 2020

REACTIONS (20)
  - Burning sensation [Recovering/Resolving]
  - Pain in extremity [Recovering/Resolving]
  - Hypoaesthesia [Recovering/Resolving]
  - Confusional state [Recovering/Resolving]
  - Hypertension [Recovering/Resolving]
  - Vascular pain [Recovering/Resolving]
  - Pain [Recovering/Resolving]
  - Hypoacusis [Recovering/Resolving]
  - Giant cell arteritis [Recovering/Resolving]
  - Haematoma [Recovering/Resolving]
  - Muscle spasms [Recovering/Resolving]
  - Heart rate increased [Recovering/Resolving]
  - General physical health deterioration [Recovering/Resolving]
  - Depressed level of consciousness [Recovering/Resolving]
  - Eye pain [Recovering/Resolving]
  - Vision blurred [Recovering/Resolving]
  - Headache [Recovering/Resolving]
  - Visual impairment [Recovering/Resolving]
  - Arrhythmia [Recovering/Resolving]
  - Condition aggravated [Recovering/Resolving]

NARRATIVE: CASE EVENT DATE: 20221107
